FAERS Safety Report 5532835-6 (Version None)
Quarter: 2007Q4

REPORT INFORMATION
  Report Type: 
  Country: None (occurrence: None)
  Receive Date: 20071204
  Receipt Date: 20071128
  Transmission Date: 20080405
  Serious: Yes (Hospitalization)
  Sender: FDA-Public Use
  Company Number: PT-BRISTOL-MYERS SQUIBB COMPANY-13997259

PATIENT
  Sex: Male

DRUGS (2)
  1. ATAZANAVIR [Suspect]
  2. RITONAVIR [Suspect]

REACTIONS (1)
  - PNEUMONIA [None]
